FAERS Safety Report 7082845-5 (Version None)
Quarter: 2010Q4

REPORT INFORMATION
  Report Type: 
  Country: None (occurrence: None)
  Receive Date: 20101104
  Receipt Date: 20101028
  Transmission Date: 20110411
  Serious: Yes (Other)
  Sender: FDA-Public Use
  Company Number: US-ALEXION PHARMACEUTICALS INC.-A201001391

PATIENT
  Age: 17 Year
  Sex: Male

DRUGS (1)
  1. SOLIRIS [Suspect]
     Indication: DOWLING-DEGOS DISEASE
     Route: 042

REACTIONS (3)
  - DISEASE PROGRESSION [None]
  - HERPES ZOSTER INFECTION NEUROLOGICAL [None]
  - VASCULITIS [None]
